FAERS Safety Report 7680655-9 (Version None)
Quarter: 2011Q3

REPORT INFORMATION
  Report Type: 
  Country: None (occurrence: None)
  Receive Date: 20110812
  Receipt Date: 20110803
  Transmission Date: 20111222
  Serious: Yes (Hospitalization, Other)
  Sender: FDA-Public Use
  Company Number: US-ASTRAZENECA-2011SE46430

PATIENT
  Age: 52 Year
  Sex: Male
  Weight: 84.8 kg

DRUGS (4)
  1. CARISOPRODOL [Concomitant]
  2. HYDROCODONE [Concomitant]
  3. SEROQUEL [Suspect]
     Indication: AGORAPHOBIA
     Dosage: 200 MG THREE TIMES A DAY, 400 MG AT NIGHT
     Route: 048
  4. XANAX [Concomitant]

REACTIONS (13)
  - PARALYSIS [None]
  - WEIGHT DECREASED [None]
  - DRUG DOSE OMISSION [None]
  - OFF LABEL USE [None]
  - SURGERY [None]
  - INTERVERTEBRAL DISC PROTRUSION [None]
  - INSOMNIA [None]
  - HYPERHIDROSIS [None]
  - HEAD TITUBATION [None]
  - THERAPEUTIC RESPONSE UNEXPECTED [None]
  - TREMOR [None]
  - NERVOUSNESS [None]
  - FALL [None]
